FAERS Safety Report 9400388 (Version 1)
Quarter: 2013Q3

REPORT INFORMATION
  Report Type: Spontaneous
  Country: US (occurrence: US)
  Receive Date: 20130715
  Receipt Date: 20130715
  Transmission Date: 20140515
  Serious: No
  Sender: FDA-Public Use
  Company Number: US-VERTEX PHARMACEUTICALS INC-2013-007915

PATIENT
  Age: 58 Year
  Sex: Male
  Weight: 62 kg

DRUGS (4)
  1. INCIVEK [Suspect]
     Indication: HEPATITIS C
     Dosage: 750 MG, TID
     Route: 048
     Dates: start: 20130617
  2. RIBAVIRIN [Suspect]
     Indication: HEPATITIS C
     Dosage: 400 MG, BID
     Route: 048
     Dates: start: 20130617
  3. PEGASYS [Suspect]
     Indication: HEPATITIS C
     Dosage: 180 ?G, QW
     Route: 058
     Dates: start: 20130616
  4. PAIN MEDICATIONS [Concomitant]

REACTIONS (5)
  - Glucose tolerance impaired [Not Recovered/Not Resolved]
  - Dyspnoea [Recovered/Resolved]
  - Irritability [Not Recovered/Not Resolved]
  - Asthenia [Recovered/Resolved]
  - Pruritus [Not Recovered/Not Resolved]
